FAERS Safety Report 5808741-6 (Version None)
Quarter: 2008Q3

REPORT INFORMATION
  Report Type: 
  Country: None (occurrence: None)
  Receive Date: 20080714
  Receipt Date: 20080708
  Transmission Date: 20090109
  Serious: Yes (Other)
  Sender: FDA-Public Use
  Company Number: CA-BRISTOL-MYERS SQUIBB COMPANY-14225668

PATIENT
  Age: 49 Year
  Sex: Female

DRUGS (9)
  1. ABATACEPT [Suspect]
     Indication: RHEUMATOID ARTHRITIS
     Dates: start: 20061127, end: 20071112
  2. ABATACEPT [Suspect]
     Indication: POLYARTHRITIS
     Dates: start: 20061127, end: 20071112
  3. PREDNISONE TAB [Concomitant]
     Route: 048
  4. CALCIUM [Concomitant]
     Dosage: CALCIUM D.
  5. PAMIDRONATE DISODIUM [Concomitant]
  6. PANTOPRAZOLE SODIUM [Concomitant]
  7. ESTRACE [Concomitant]
  8. RIVOTRIL [Concomitant]
  9. TRAMACET [Concomitant]

REACTIONS (1)
  - GRANULOMA ANNULARE [None]
